FAERS Safety Report 9796627 (Version 1)
Quarter: 2014Q1

REPORT INFORMATION
  Report Type: Spontaneous
  Country: FI (occurrence: FI)
  Receive Date: 20140103
  Receipt Date: 20140103
  Transmission Date: 20141002
  Serious: Yes (Hospitalization)
  Sender: FDA-Public Use
  Company Number: FI-PFIZER INC-2013373546

PATIENT
  Age: 84 Year
  Sex: 0

DRUGS (2)
  1. SALAZOPYRIN [Suspect]
     Indication: RHEUMATOID ARTHRITIS
     Dosage: 1000 DF, 1X/DAY
     Route: 048
     Dates: start: 20131022, end: 20131207
  2. TREXAN [Suspect]
     Indication: RHEUMATOID ARTHRITIS
     Dosage: 10 MG, WEEKLY
     Route: 048
     Dates: start: 20131022, end: 20131207

REACTIONS (6)
  - Stevens-Johnson syndrome [Recovered/Resolved]
  - Pancytopenia [Recovered/Resolved]
  - Wound [Recovered/Resolved]
  - Oral pain [Recovered/Resolved]
  - Pyrexia [Recovered/Resolved]
  - Malaise [Recovered/Resolved]
